FAERS Safety Report 4907012-X (Version None)
Quarter: 2006Q1

REPORT INFORMATION
  Report Type: 
  Country: None (occurrence: None)
  Receive Date: 20060207
  Receipt Date: 20060126
  Transmission Date: 20060701
  Serious: Yes (Hospitalization)
  Sender: FDA-Public Use
  Company Number: 2005PV003627

PATIENT
  Age: 79 Year
  Sex: Female
  Weight: 75.5239 kg

DRUGS (9)
  1. BYETTA [Suspect]
     Indication: DIABETES MELLITUS NON-INSULIN-DEPENDENT
     Dosage: 10 MCG; BID; SC;  5MCG; BID; SC
     Route: 058
     Dates: start: 20050720, end: 20050922
  2. BYETTA [Suspect]
     Indication: DIABETES MELLITUS NON-INSULIN-DEPENDENT
     Dosage: 10 MCG; BID; SC;  5MCG; BID; SC
     Route: 058
     Dates: start: 20050923, end: 20051017
  3. LANTUS [Concomitant]
  4. DIOVAN HCT [Concomitant]
  5. DIOVAN [Concomitant]
  6. HUMALOG [Concomitant]
  7. IBUPROFEN [Concomitant]
  8. LEVOTHYROXINE SODIUM [Concomitant]
  9. METFORMIN HCL [Concomitant]

REACTIONS (11)
  - AZOTAEMIA [None]
  - BLOOD GLUCOSE INCREASED [None]
  - BLOOD LACTATE DEHYDROGENASE INCREASED [None]
  - FALL [None]
  - HAEMORRHAGIC STROKE [None]
  - HYPERTENSION [None]
  - HYPOTHYROIDISM [None]
  - KLEBSIELLA INFECTION [None]
  - NAUSEA [None]
  - PYURIA [None]
  - VOMITING [None]
